FAERS Safety Report 20922717 (Version 3)
Quarter: 2022Q3

REPORT INFORMATION
  Report Type: Report from Study
  Country: US (occurrence: None)
  Receive Date: 20220607
  Receipt Date: 20220804
  Transmission Date: 20221027
  Serious: Yes (Hospitalization)
  Sender: FDA-Public Use
  Company Number: US-ROCHE-3109655

PATIENT
  Age: 62 Year
  Sex: Female
  Weight: 88 kg

DRUGS (3)
  1. ATEZOLIZUMAB [Suspect]
     Active Substance: ATEZOLIZUMAB
     Indication: Ovarian cancer
     Dosage: OVER 1 HOUR ON DAYS 1 AND 15,  ON 11/JAN/2022 WAS LAST ADMINISTRATED DATE PRIOR TO AE
     Route: 042
     Dates: start: 20211005
  2. BEVACIZUMAB [Suspect]
     Active Substance: BEVACIZUMAB
     Indication: Ovarian cancer
     Dosage: ON 11/JAN/2022 WAS LAST ADMINISTRATED DATE OF BEVACIZUMAB  PRIOR TO AE , AND IV OVER 90 MINUTES ON D
     Route: 042
     Dates: start: 20211005
  3. DOXORUBICIN HYDROCHLORIDE [Suspect]
     Active Substance: DOXORUBICIN HYDROCHLORIDE
     Indication: Ovarian cancer
     Dosage: ON 11/JAN/2022 WAS LAST ADMINISTRATED DATE OF LIPOSOMAL DOXORUBICIN  PRIOR TO AE, AND IV OVER 1 HOUR
     Route: 042
     Dates: start: 20211005

REACTIONS (1)
  - Acute myocardial infarction [Recovered/Resolved]

NARRATIVE: CASE EVENT DATE: 20220124
